FAERS Safety Report 5556747-7 (Version None)
Quarter: 2007Q4

REPORT INFORMATION
  Report Type: 
  Country: None (occurrence: None)
  Receive Date: 20071128
  Receipt Date: 20070809
  Transmission Date: 20080405
  Serious: Yes (Hospitalization)
  Sender: FDA-Public Use
  Company Number: CIP07001573

PATIENT
  Age: 71 Year
  Sex: Female

DRUGS (7)
  1. ACTONEL [Suspect]
     Dosage: 35 MG, ONCE WEEKLY, ORAL
     Route: 048
     Dates: start: 20040201, end: 20060501
  2. LEVOXYL [Concomitant]
  3. FUROSEMIDE [Concomitant]
  4. LACTULOSE [Concomitant]
  5. CALTRATE + D (VITAMIN D NOS, CALCIUM) [Concomitant]
  6. ASPIRIN [Concomitant]
  7. HORSE CHESTNUT EXTRACT (AESCULUS HIPPOCASTANUM EXTRACT) [Concomitant]

REACTIONS (6)
  - JAW FRACTURE [None]
  - OSTEOMYELITIS [None]
  - OSTEONECROSIS [None]
  - PAIN IN JAW [None]
  - SUBCUTANEOUS ABSCESS [None]
  - SWELLING FACE [None]
